FAERS Safety Report 7716204-6 (Version None)
Quarter: 2011Q3

REPORT INFORMATION
  Report Type: 
  Country: None (occurrence: None)
  Receive Date: 20110829
  Receipt Date: 20110812
  Transmission Date: 20111222
  Serious: No
  Sender: FDA-Public Use
  Company Number: PHEH2011US01510

PATIENT
  Sex: Female
  Weight: 75.737 kg

DRUGS (19)
  1. ALLOPURINOL [Concomitant]
     Indication: GOUT
     Dosage: 300 MG, QD
     Route: 048
  2. TEA, GREEN [Concomitant]
  3. VITAMIN B6 [Concomitant]
  4. LISINOPRIL [Concomitant]
     Dosage: UNK
  5. CALCIUM CARBONATE [Concomitant]
  6. BIOTIN [Concomitant]
  7. ASPIRIN [Concomitant]
  8. FOLIC ACID [Concomitant]
  9. CRESTOR [Concomitant]
     Route: 048
  10. OMEPRAZOLE [Concomitant]
     Dosage: 20 MG, QD
     Route: 048
  11. AMLODIPINE [Concomitant]
     Dosage: 5 MG, QD
  12. FISH OIL [Concomitant]
  13. VITAMIN E [Concomitant]
  14. TASIGNA [Suspect]
     Indication: CHRONIC MYELOID LEUKAEMIA
     Dosage: 300 MG, BID
     Route: 048
     Dates: start: 20110528
  15. ZINC [Concomitant]
  16. VITAMIN B-12 [Concomitant]
  17. CHROMIUM PICOLINATE [Concomitant]
  18. HYDROXYUREA [Concomitant]
     Indication: CHRONIC MYELOID LEUKAEMIA
     Dosage: 500 MG, BID
     Route: 048
  19. ASCORBIC ACID [Concomitant]

REACTIONS (5)
  - INNER EAR DISORDER [None]
  - NAUSEA [None]
  - BACK PAIN [None]
  - ALOPECIA [None]
  - COUGH [None]
